FAERS Safety Report 23689742 (Version 1)
Quarter: 2024Q1

REPORT INFORMATION
  Report Type: Spontaneous
  Country: CN (occurrence: CN)
  Receive Date: 20240331
  Receipt Date: 20240331
  Transmission Date: 20240410
  Serious: No
  Sender: FDA-Public Use
  Company Number: CN-009507513-2403CHN008691

PATIENT
  Age: 92 Year
  Sex: Male
  Weight: 55 kg

DRUGS (1)
  1. LAGEVRIO [Suspect]
     Active Substance: MOLNUPIRAVIR
     Indication: COVID-19 treatment
     Dosage: 0.8 G, BID
     Route: 045
     Dates: start: 20240316, end: 20240321

REACTIONS (3)
  - Diarrhoea [Recovering/Resolving]
  - Incorrect route of product administration [Unknown]
  - Incorrect product administration duration [Unknown]

NARRATIVE: CASE EVENT DATE: 20240316
